FAERS Safety Report 18337638 (Version 1)
Quarter: 2020Q4

REPORT INFORMATION
  Report Type: Report from Study
  Country: None (occurrence: JP)
  Receive Date: 20201002
  Receipt Date: 20201002
  Transmission Date: 20210113
  Serious: Yes (Hospitalization)
  Sender: FDA-Public Use
  Company Number: JP-ABBVIE-18S-087-2575059-00

PATIENT
  Age: 71 Year
  Sex: Male

DRUGS (2)
  1. DUODOPA [Suspect]
     Active Substance: CARBIDOPA\LEVODOPA
     Indication: PARKINSON^S DISEASE
     Route: 050
     Dates: start: 20181024
  2. DUODOPA [Suspect]
     Active Substance: CARBIDOPA\LEVODOPA

REACTIONS (17)
  - Duodenal ulcer perforation [Unknown]
  - Stoma site infection [Recovered/Resolved]
  - Medical device site pain [Unknown]
  - Drug ineffective [Unknown]
  - Abdominal pain upper [Recovered/Resolved]
  - Malaise [Unknown]
  - Tremor [Unknown]
  - Stoma site pain [Unknown]
  - Stoma site extravasation [Unknown]
  - Stoma site discharge [Unknown]
  - On and off phenomenon [Unknown]
  - Therapeutic response shortened [Unknown]
  - Stoma site erythema [Unknown]
  - Stoma site oedema [Unknown]
  - Peritonitis [Unknown]
  - Fall [Unknown]
  - Stoma site discharge [Recovered/Resolved]

NARRATIVE: CASE EVENT DATE: 2018
